FAERS Safety Report 13713668 (Version 11)
Quarter: 2018Q3

REPORT INFORMATION
  Report Type: Spontaneous
  Country: DE (occurrence: DE)
  Receive Date: 20170704
  Receipt Date: 20180904
  Transmission Date: 20181010
  Serious: Yes (Hospitalization)
  Sender: FDA-Public Use
  Company Number: DE-ROCHE-1953282

PATIENT
  Age: 87 Year
  Sex: Male

DRUGS (9)
  1. ASPIRIN. [Concomitant]
     Active Substance: ASPIRIN
     Route: 065
  2. PREDNISOLON [Concomitant]
     Active Substance: PREDNISOLONE
     Route: 065
  3. METOPROLOL. [Concomitant]
     Active Substance: METOPROLOL
     Indication: HYPERTENSION
     Route: 048
  4. PRAVASTATIN. [Concomitant]
     Active Substance: PRAVASTATIN
     Route: 065
  5. MABTHERA [Suspect]
     Active Substance: RITUXIMAB
     Indication: HAIRY CELL LEUKAEMIA
     Dosage: 2 INFUSIONS
     Route: 042
     Dates: start: 20160302
  6. ASPIRIN. [Concomitant]
     Active Substance: ASPIRIN
     Route: 065
  7. CANDESARTAN. [Concomitant]
     Active Substance: CANDESARTAN
     Route: 065
  8. PRAVASTATIN. [Concomitant]
     Active Substance: PRAVASTATIN
     Route: 065
  9. URBASON [Concomitant]
     Active Substance: METHYLPREDNISOLONE
     Route: 065

REACTIONS (14)
  - Intentional product use issue [Unknown]
  - Insomnia [Not Recovered/Not Resolved]
  - Aphonia [Unknown]
  - Peripheral swelling [Recovered/Resolved]
  - Monoclonal gammopathy [Recovered/Resolved]
  - Gastrointestinal disorder [Recovered/Resolved]
  - Hypertension [Recovered/Resolved]
  - Sleep disorder [Not Recovered/Not Resolved]
  - Headache [Unknown]
  - Demyelinating polyneuropathy [Not Recovered/Not Resolved]
  - Pain in extremity [Unknown]
  - Faeces hard [Not Recovered/Not Resolved]
  - Hypertensive crisis [Recovered/Resolved]
  - Off label use [Unknown]

NARRATIVE: CASE EVENT DATE: 20160302
